FAERS Safety Report 17465111 (Version 18)
Quarter: 2022Q2

REPORT INFORMATION
  Report Type: Report from Study
  Country: JP (occurrence: JP)
  Receive Date: 20200226
  Receipt Date: 20220628
  Transmission Date: 20220721
  Serious: Yes (Death, Hospitalization, Other)
  Sender: FDA-Public Use
  Company Number: JP-BRISTOL-MYERS SQUIBB COMPANY-BMS-2020-016073

PATIENT
  Age: 8 Decade
  Sex: Male
  Weight: 41.1 kg

DRUGS (15)
  1. YERVOY [Suspect]
     Active Substance: IPILIMUMAB
     Indication: Metastatic renal cell carcinoma
     Dosage: 1 MG/KG
     Route: 041
     Dates: start: 20191212, end: 20191212
  2. YERVOY [Suspect]
     Active Substance: IPILIMUMAB
     Dosage: 1 MG/KG
     Route: 041
     Dates: start: 20200220, end: 20200312
  3. YERVOY [Suspect]
     Active Substance: IPILIMUMAB
     Dosage: 1 MG/KG
     Route: 041
     Dates: start: 20200423, end: 20200423
  4. YERVOY [Suspect]
     Active Substance: IPILIMUMAB
  5. YERVOY [Suspect]
     Active Substance: IPILIMUMAB
  6. OPDIVO [Suspect]
     Active Substance: NIVOLUMAB
     Indication: Metastatic renal cell carcinoma
     Route: 041
     Dates: start: 20191212, end: 20191212
  7. OPDIVO [Suspect]
     Active Substance: NIVOLUMAB
     Route: 041
     Dates: start: 20200220, end: 20200312
  8. OPDIVO [Suspect]
     Active Substance: NIVOLUMAB
     Route: 041
     Dates: start: 20200423, end: 20200423
  9. CARBOCYSTEINE [Suspect]
     Active Substance: CARBOCYSTEINE
     Indication: Cough
     Dosage: 500 MG, Q8H
     Route: 065
     Dates: start: 20200606, end: 20200618
  10. CARBOCYSTEINE [Suspect]
     Active Substance: CARBOCYSTEINE
  11. CARBOCYSTEINE [Suspect]
     Active Substance: CARBOCYSTEINE
  12. CALONAL [Suspect]
     Active Substance: ACETAMINOPHEN
     Indication: Pain
     Dosage: 400 MG, Q6H
     Route: 048
     Dates: start: 20200130, end: 20200311
  13. CALONAL [Suspect]
     Active Substance: ACETAMINOPHEN
     Dosage: 1200 MG
     Route: 048
     Dates: start: 20200312, end: 20200401
  14. CALONAL [Suspect]
     Active Substance: ACETAMINOPHEN
     Dosage: 400 MG, Q6H
     Route: 048
     Dates: start: 20200402, end: 20200626
  15. URSODIOL [Suspect]
     Active Substance: URSODIOL
     Indication: Prophylaxis
     Dosage: 100 MG, Q8H
     Route: 048
     Dates: start: 20200618, end: 20200626

REACTIONS (15)
  - Hypothyroidism [Unknown]
  - Pain in extremity [Not Recovered/Not Resolved]
  - Intestinal obstruction [Recovered/Resolved]
  - Hepatic function abnormal [Not Recovered/Not Resolved]
  - Constipation [Unknown]
  - Hypozincaemia [Unknown]
  - Blood folate decreased [Recovered/Resolved]
  - Decreased appetite [Recovering/Resolving]
  - Cough [Not Recovered/Not Resolved]
  - Malignant neoplasm progression [Fatal]
  - Pain [Not Recovered/Not Resolved]
  - Oedema peripheral [Not Recovered/Not Resolved]
  - Anaemia of chronic disease [Recovering/Resolving]
  - Oedema [Not Recovered/Not Resolved]
  - Anaemia folate deficiency [Recovered/Resolved]

NARRATIVE: CASE EVENT DATE: 20200102
